FAERS Safety Report 9418068 (Version 1)
Quarter: 2013Q3

REPORT INFORMATION
  Report Type: Spontaneous
  Country: CA (occurrence: CA)
  Receive Date: 20130724
  Receipt Date: 20130724
  Transmission Date: 20140515
  Serious: Yes (Other)
  Sender: FDA-Public Use
  Company Number: CA-B.I. PHARMACEUTICALS,INC./RIDGEFIELD-2013-CN-01280CN

PATIENT
  Age: 73 Year
  Sex: Male

DRUGS (1)
  1. PRADAXA [Suspect]
     Dosage: 300 MG

REACTIONS (3)
  - Ischaemic stroke [Unknown]
  - Paralysis [Unknown]
  - Cardioversion [Unknown]
